FAERS Safety Report 19577194 (Version 1)
Quarter: 2021Q3

REPORT INFORMATION
  Report Type: Report from Study
  Country: None (occurrence: CO)
  Receive Date: 20210719
  Receipt Date: 20210719
  Transmission Date: 20211014
  Serious: Yes (Other)
  Sender: FDA-Public Use
  Company Number: CO-ABBVIE-20K-036-3268753-00

PATIENT
  Age: 51 Year
  Sex: Male
  Weight: 47 kg

DRUGS (2)
  1. ZEMPLAR [Suspect]
     Active Substance: PARICALCITOL
     Indication: HYPERPARATHYROIDISM SECONDARY
     Route: 042
     Dates: start: 20170717, end: 20210212
  2. ZEMPLAR [Suspect]
     Active Substance: PARICALCITOL
     Indication: CHRONIC KIDNEY DISEASE

REACTIONS (4)
  - Body height abnormal [Recovering/Resolving]
  - Thyroid disorder [Recovering/Resolving]
  - Drug ineffective [Not Recovered/Not Resolved]
  - Blood parathyroid hormone abnormal [Recovering/Resolving]

NARRATIVE: CASE EVENT DATE: 201908
